FAERS Safety Report 4476750-8 (Version None)
Quarter: 2004Q4

REPORT INFORMATION
  Report Type: 
  Country: None (occurrence: None)
  Receive Date: 20041013
  Receipt Date: 20040928
  Transmission Date: 20050328
  Serious: Yes (Hospitalization)
  Sender: FDA-Public Use
  Company Number: USA040979506

PATIENT
  Age: 72 Year
  Sex: Female
  Weight: 67 kg

DRUGS (3)
  1. HUMALOG [Suspect]
     Indication: DIABETES MELLITUS
     Dates: start: 19980101
  2. HUMULIN N [Suspect]
     Indication: DIABETES MELLITUS
     Dosage: 12 U AS NEEDED
     Dates: start: 19820101
  3. ALLERGY SHOT [Concomitant]

REACTIONS (9)
  - ALLERGY TO PLANTS [None]
  - ARTHRITIS [None]
  - BLOOD GLUCOSE FLUCTUATION [None]
  - HOUSE DUST ALLERGY [None]
  - MYCOTIC ALLERGY [None]
  - PHARMACEUTICAL PRODUCT COMPLAINT [None]
  - SINUSITIS [None]
  - THROMBOSIS [None]
  - VISUAL ACUITY REDUCED [None]
